FAERS Safety Report 20206980 (Version 1)
Quarter: 2021Q4

REPORT INFORMATION
  Report Type: Report from Study
  Country: US (occurrence: US)
  Receive Date: 20211220
  Receipt Date: 20211220
  Transmission Date: 20220303
  Serious: Yes (Hospitalization)
  Sender: FDA-Public Use
  Company Number: US-IGSA-BIG0017012

PATIENT
  Age: 54 Year
  Sex: Female
  Weight: 68 kg

DRUGS (21)
  1. PROLASTIN-C LIQUID [Suspect]
     Active Substance: .ALPHA.1-PROTEINASE INHIBITOR HUMAN
     Indication: Alpha-1 antitrypsin deficiency
     Dosage: 60 MILLIGRAM/KILOGRAM, Q.WK.
     Route: 042
     Dates: start: 20211214
  2. PROLASTIN-C LIQUID [Suspect]
     Active Substance: .ALPHA.1-PROTEINASE INHIBITOR HUMAN
     Dosage: 60 MILLIGRAM/KILOGRAM, Q.WK.
     Route: 042
     Dates: start: 20190308
  3. ACCUNEB [Concomitant]
     Active Substance: ALBUTEROL SULFATE
  4. PROVENTIL HFA [SALBUTAMOL] [Concomitant]
  5. AZITHROMYCIN [Concomitant]
     Active Substance: AZITHROMYCIN
  6. MUCINEX ALLERGY [Concomitant]
     Active Substance: FEXOFENADINE HYDROCHLORIDE
  7. ADVAIR HFA [Concomitant]
     Active Substance: FLUTICASONE PROPIONATE\SALMETEROL XINAFOATE
  8. NEURONTIN [Concomitant]
     Active Substance: GABAPENTIN
  9. MELOXICAM [Concomitant]
     Active Substance: MELOXICAM
  10. PREDNISONE [Concomitant]
     Active Substance: PREDNISONE
  11. SPIRIVA RESPIMAT [Concomitant]
     Active Substance: TIOTROPIUM BROMIDE
  12. DESPEC DM [DEXTROMETHORPHAN HYDROBROMIDE;GUAIFENESIN;PHENYLEPHRINE HYD [Concomitant]
  13. DALIRESP [Concomitant]
     Active Substance: ROFLUMILAST
  14. ELIQUIS [Concomitant]
     Active Substance: APIXABAN
  15. COLACE [Concomitant]
     Active Substance: DOCUSATE SODIUM
  16. SENNA SMOOTH [Concomitant]
  17. MIRALAX [Concomitant]
     Active Substance: POLYETHYLENE GLYCOL 3350
  18. ATENOLOL [Concomitant]
     Active Substance: ATENOLOL
  19. VITAMIN D NOS [Concomitant]
     Active Substance: VITAMIN D NOS
  20. OMEPRAZOLE [Concomitant]
     Active Substance: OMEPRAZOLE
  21. METOPROLOL TARTRATE [Concomitant]
     Active Substance: METOPROLOL TARTRATE

REACTIONS (3)
  - Chronic obstructive pulmonary disease [Recovering/Resolving]
  - Erythema [Recovering/Resolving]
  - Dyspnoea [Recovering/Resolving]

NARRATIVE: CASE EVENT DATE: 20211214
